FAERS Safety Report 23785260 (Version 2)
Quarter: 2024Q2

REPORT INFORMATION
  Report Type: Spontaneous
  Country: JP (occurrence: JP)
  Receive Date: 20240425
  Receipt Date: 20240607
  Transmission Date: 20240716
  Serious: Yes (Hospitalization)
  Sender: FDA-Public Use
  Company Number: JP-CARA THERAPEUTICS, INC.-2024-00224-JP

PATIENT
  Age: 85 Year
  Sex: Male

DRUGS (7)
  1. KORSUVA [Suspect]
     Active Substance: DIFELIKEFALIN ACETATE
     Indication: Pruritus
     Dosage: 25 ?G (25 ?G/ )
     Route: 042
     Dates: start: 20240203, end: 20240314
  2. LEVOTHYROXINE [Concomitant]
     Active Substance: LEVOTHYROXINE\LEVOTHYROXINE SODIUM
  3. TENELIGLIPTIN [Concomitant]
     Active Substance: TENELIGLIPTIN
  4. GASTER [Concomitant]
     Active Substance: FAMOTIDINE
  5. LIVACT [AMINO ACIDS NOS] [Concomitant]
  6. PANTETHINE [Concomitant]
     Active Substance: PANTETHINE
  7. PYRIDOXAL [Concomitant]
     Active Substance: PYRIDOXAL

REACTIONS (1)
  - Asthenia [Recovered/Resolved]

NARRATIVE: CASE EVENT DATE: 20240312
